FAERS Safety Report 7933158-8 (Version None)
Quarter: 2011Q4

REPORT INFORMATION
  Report Type: 
  Country: None (occurrence: None)
  Receive Date: 20111122
  Receipt Date: 20050804
  Transmission Date: 20120403
  Serious: Yes (Other)
  Sender: FDA-Public Use
  Company Number: US-ENDO PHARMACEUTICALS INC.-PRIM20110004

PATIENT
  Sex: Female

DRUGS (1)
  1. PRIMIDONE [Suspect]
     Indication: ESSENTIAL TREMOR
     Route: 048
     Dates: start: 20050701, end: 20050709

REACTIONS (1)
  - STEVENS-JOHNSON SYNDROME [None]
